FAERS Safety Report 4559728-5 (Version None)
Quarter: 2005Q1

REPORT INFORMATION
  Report Type: 
  Country: None (occurrence: None)
  Receive Date: 20050114
  Receipt Date: 20040212
  Transmission Date: 20050727
  Serious: Yes (Hospitalization)
  Sender: FDA-Public Use
  Company Number: BDI-005831

PATIENT
  Age: 50 Year
  Sex: Female
  Weight: 100 kg

DRUGS (5)
  1. PROHANCE [Suspect]
     Indication: ASTHENIA
     Dosage: 17 ML ONCE IV
     Route: 042
     Dates: start: 20040211, end: 20040211
  2. PROHANCE [Suspect]
     Indication: BACK PAIN
     Dosage: 17 ML ONCE IV
     Route: 042
     Dates: start: 20040211, end: 20040211
  3. PROHANCE [Suspect]
     Indication: NUCLEAR MAGNETIC RESONANCE IMAGING
     Dosage: 17 ML ONCE IV
     Route: 042
     Dates: start: 20040211, end: 20040211
  4. SOMA [Concomitant]
  5. VALIUM [Concomitant]

REACTIONS (1)
  - CONTRAST MEDIA REACTION [None]
